FAERS Safety Report 11311706 (Version 1)
Quarter: 2015Q3

REPORT INFORMATION
  Report Type: Spontaneous
  Country: US (occurrence: None)
  Receive Date: 20150724
  Receipt Date: 20150724
  Transmission Date: 20151125
  Serious: No
  Sender: FDA-Public Use
  Company Number: None

PATIENT
  Age: 79 Year
  Sex: Male

DRUGS (8)
  1. DILTIAZEM [Concomitant]
     Active Substance: DILTIAZEM
  2. INSULIN APART [Concomitant]
  3. PANTOPRAZOLE [Concomitant]
     Active Substance: PANTOPRAZOLE SODIUM
  4. HYDROMORPHONE [Suspect]
     Active Substance: HYDROMORPHONE
     Indication: PAIN
     Dosage: EVERY 10 MINUTES
     Route: 042
     Dates: start: 20150414, end: 20150414
  5. METOPROLOL TARTRATE. [Concomitant]
     Active Substance: METOPROLOL TARTRATE
  6. HEPARIN [Concomitant]
     Active Substance: HEPARIN SODIUM
  7. MEROPENEM. [Concomitant]
     Active Substance: MEROPENEM
  8. ONDANSETRON [Concomitant]
     Active Substance: ONDANSETRON

REACTIONS (5)
  - Depressed level of consciousness [None]
  - Vomiting [None]
  - Hernia [None]
  - Unresponsive to stimuli [None]
  - Pyelonephritis [None]

NARRATIVE: CASE EVENT DATE: 20150414
